FAERS Safety Report 4680074-3 (Version None)
Quarter: 2005Q2

REPORT INFORMATION
  Report Type: 
  Country: None (occurrence: None)
  Receive Date: 20050531
  Receipt Date: 20050523
  Transmission Date: 20051028
  Serious: Yes (Death, Hospitalization)
  Sender: FDA-Public Use
  Company Number: 2004094815

PATIENT
  Age: 62 Year
  Sex: Male

DRUGS (7)
  1. IRINOTECAN HCL [Suspect]
     Indication: COLON CANCER STAGE IV
     Dosage: 144 MG (CYCLICAL), INTRAVENOUS
     Route: 042
     Dates: start: 20041030, end: 20041101
  2. FLUOROURACIL [Suspect]
     Indication: COLON CANCER STAGE IV
     Dosage: 2025 MG (CYCLICAL), INTRAVENOUS
     Route: 042
     Dates: start: 20041030, end: 20041101
  3. FRAXIPARIN (HEPARIN-FRACTION, CALCIUM SALT) [Concomitant]
  4. LORAZEPAM [Concomitant]
  5. ACETAMINOPHEN [Concomitant]
  6. LOSEC (OMEPRAZOLE) [Concomitant]
  7. CODEINE SUL TAB [Concomitant]

REACTIONS (7)
  - COORDINATION ABNORMAL [None]
  - DEPRESSED LEVEL OF CONSCIOUSNESS [None]
  - DIARRHOEA [None]
  - HYPERCALCAEMIA [None]
  - HYPERNATRAEMIA [None]
  - KIDNEY INFECTION [None]
  - RENAL FAILURE [None]
